FAERS Safety Report 4895113-4 (Version None)
Quarter: 2006Q1

REPORT INFORMATION
  Report Type: 
  Country: None (occurrence: None)
  Receive Date: 20060124
  Receipt Date: 20060117
  Transmission Date: 20060701
  Serious: Yes (Hospitalization)
  Sender: FDA-Public Use
  Company Number: NALX20050002

PATIENT
  Age: 25 Year
  Sex: Male

DRUGS (4)
  1. NALOXONE [Suspect]
     Indication: OVERDOSE
     Dosage: 0.8 MG 2 DOSES IM/IV
     Route: 045
     Dates: start: 19980815, end: 19980815
  2. HEROIN [Suspect]
     Dates: start: 19980815
  3. ROHYPNOL (FLUNITRAZEPAM) HOFFMAN-LAROCHE, INC. [Suspect]
     Dates: start: 19980815
  4. ALCOHOL [Suspect]
     Dosage: PO
     Route: 048
     Dates: start: 19980815

REACTIONS (9)
  - CONFUSIONAL STATE [None]
  - DRUG INTERACTION [None]
  - FEELING ABNORMAL [None]
  - LOSS OF CONSCIOUSNESS [None]
  - MIOSIS [None]
  - MULTIPLE DRUG OVERDOSE [None]
  - RESPIRATORY ARREST [None]
  - RESPIRATORY FAILURE [None]
  - TREMOR [None]
